FAERS Safety Report 5676001-2 (Version None)
Quarter: 2008Q1

REPORT INFORMATION
  Report Type: 
  Country: None (occurrence: None)
  Receive Date: 20080318
  Receipt Date: 20080229
  Transmission Date: 20080703
  Serious: Yes (Death)
  Sender: FDA-Public Use
  Company Number: 2008-01633

PATIENT
  Sex: Female

DRUGS (1)
  1. COLCHICUM JTL LIQ [Suspect]
     Indication: BACK PAIN
     Dosage: 16 MG, QOD, INTRAVENOUS
     Route: 042
     Dates: start: 20070313, end: 20070319

REACTIONS (4)
  - ACCIDENTAL OVERDOSE [None]
  - CARDIAC ARREST [None]
  - DRUG TOXICITY [None]
  - MEDICATION ERROR [None]
